FAERS Safety Report 8157137-3 (Version None)
Quarter: 2012Q1

REPORT INFORMATION
  Report Type: 
  Country: None (occurrence: None)
  Receive Date: 20120222
  Receipt Date: 20120213
  Transmission Date: 20120608
  Serious: Yes (Other)
  Sender: FDA-Public Use
  Company Number: US-BAYER-2011-067645

PATIENT
  Age: 26 Year
  Sex: Female
  Weight: 95.692 kg

DRUGS (6)
  1. HYDROCODONE [Concomitant]
     Dosage: UNK
     Dates: start: 20071005
  2. METRODIAZOLE [Concomitant]
     Dosage: UNK
     Dates: start: 20070919
  3. ZITHROMAX [Concomitant]
     Dosage: 1 G, UNK
     Route: 048
     Dates: start: 20071103
  4. YAZ [Suspect]
     Indication: CONTRACEPTION
     Dosage: UNK
     Dates: start: 20070919, end: 20071201
  5. FLAGYL [Concomitant]
     Dosage: UNK
     Dates: start: 20071103
  6. CIPRO [Concomitant]
     Dosage: 500 MG, UNK
     Route: 048
     Dates: start: 20071103

REACTIONS (9)
  - PAIN [None]
  - ABDOMINAL PAIN UPPER [None]
  - CHEST PAIN [None]
  - CHOLECYSTITIS CHRONIC [None]
  - FEAR [None]
  - GALLBLADDER DISORDER [None]
  - CHOLELITHIASIS [None]
  - NAUSEA [None]
  - ABDOMINAL PAIN [None]
